FAERS Safety Report 9285078 (Version 1)
Quarter: 2013Q2

REPORT INFORMATION
  Report Type: Report from Study
  Country: DE (occurrence: DE)
  Receive Date: 20130513
  Receipt Date: 20130513
  Transmission Date: 20140414
  Serious: Yes (Life-Threatening, Hospitalization)
  Sender: FDA-Public Use
  Company Number: DE-ROCHE-1214535

PATIENT
  Sex: Female

DRUGS (18)
  1. TOCILIZUMAB [Suspect]
     Indication: RHEUMATOID ARTHRITIS
     Route: 065
     Dates: start: 201101, end: 201107
  2. METHOTREXATE [Suspect]
     Indication: RHEUMATOID ARTHRITIS
     Route: 051
     Dates: start: 200706, end: 201010
  3. METHOTREXATE [Suspect]
     Route: 065
  4. PREDNISOLON [Concomitant]
     Indication: RHEUMATOID ARTHRITIS
     Dosage: QD
     Route: 065
  5. PHENPROCUMONE [Concomitant]
  6. DECORTIN [Concomitant]
     Dosage: QD
     Route: 065
  7. NEBIVOLOL [Concomitant]
     Dosage: QD
     Route: 065
  8. SIMVASTATIN [Concomitant]
     Dosage: QD
     Route: 065
  9. ESIDRIX [Concomitant]
     Dosage: QD
     Route: 065
  10. NEXIUM [Concomitant]
     Dosage: QD
     Route: 065
  11. RAMIPRIL [Concomitant]
     Route: 065
  12. ASS [Concomitant]
     Dosage: QD
     Route: 065
  13. AMLODIPIN [Concomitant]
     Route: 065
  14. MOXONIDIN [Concomitant]
     Dosage: QD
     Route: 065
  15. METEX [Concomitant]
     Route: 065
  16. FOLGAMMA [Concomitant]
     Route: 065
  17. L-THYROXIN [Concomitant]
     Dosage: QD
     Route: 065
  18. ARIXTRA [Concomitant]
     Dosage: QD
     Route: 065

REACTIONS (10)
  - Cerebral infarction [Recovered/Resolved with Sequelae]
  - Haemorrhage [Recovered/Resolved with Sequelae]
  - Cerebrovascular accident [Not Recovered/Not Resolved]
  - Dysarthria [Not Recovered/Not Resolved]
  - Dysphagia [Unknown]
  - Neurologic neglect syndrome [Not Recovered/Not Resolved]
  - Anosognosia [Unknown]
  - Hemiparesis [Not Recovered/Not Resolved]
  - Hypoaesthesia [Not Recovered/Not Resolved]
  - Speech disorder [Unknown]
